FAERS Safety Report 6202538-3 (Version None)
Quarter: 2009Q2

REPORT INFORMATION
  Report Type: 
  Country: None (occurrence: None)
  Receive Date: 20090526
  Receipt Date: 20090526
  Transmission Date: 20091009
  Serious: Yes (Other)
  Sender: FDA-Public Use
  Company Number: US-PFIZER INC-2009192772

PATIENT
  Sex: Male
  Weight: 72.574 kg

DRUGS (1)
  1. XALATAN [Suspect]
     Indication: GLAUCOMA
     Dates: start: 20090301

REACTIONS (4)
  - EYE SWELLING [None]
  - EYELID PTOSIS [None]
  - MADAROSIS [None]
  - OCULAR HYPERAEMIA [None]
